FAERS Safety Report 21347516 (Version 1)
Quarter: 2022Q3

REPORT INFORMATION
  Report Type: Spontaneous
  Country: SE (occurrence: SE)
  Receive Date: 20220919
  Receipt Date: 20220919
  Transmission Date: 20221027
  Serious: Yes (Hospitalization)
  Sender: FDA-Public Use
  Company Number: SE-NOVOPROD-957808

PATIENT
  Age: 46 Year
  Sex: Female
  Weight: 88 kg

DRUGS (1)
  1. SAXENDA [Suspect]
     Active Substance: LIRAGLUTIDE
     Indication: Weight control
     Dosage: 1.2 MG, QD (1.2 MG + 6 ^CLICK^)
     Route: 058
     Dates: start: 20220601

REACTIONS (2)
  - Hyperchlorhydria [Unknown]
  - Off label use [Unknown]

NARRATIVE: CASE EVENT DATE: 20220601
